FAERS Safety Report 6794256-8 (Version None)
Quarter: 2010Q2

REPORT INFORMATION
  Report Type: 
  Country: None (occurrence: None)
  Receive Date: 20100625
  Receipt Date: 20100616
  Transmission Date: 20101027
  Serious: No
  Sender: FDA-Public Use
  Company Number: US-BIOGENIDEC-2010BI018340

PATIENT
  Age: 61 Year
  Sex: Female

DRUGS (1)
  1. TYSABRI [Suspect]
     Indication: MULTIPLE SCLEROSIS
     Route: 042
     Dates: start: 20100322

REACTIONS (4)
  - ARTHRALGIA [None]
  - BLOOD CREATINE INCREASED [None]
  - GLOMERULAR FILTRATION RATE INCREASED [None]
  - PAIN IN EXTREMITY [None]
